FAERS Safety Report 9081835 (Version 3)
Quarter: 2013Q2

REPORT INFORMATION
  Report Type: Spontaneous
  Country: US (occurrence: US)
  Receive Date: 20130218
  Receipt Date: 20130417
  Transmission Date: 20140414
  Serious: Yes (Death)
  Sender: FDA-Public Use
  Company Number: US-PFIZER INC-2013060166

PATIENT
  Age: 66 Year
  Sex: Male

DRUGS (2)
  1. SUTENT [Suspect]
     Indication: GASTROINTESTINAL CARCINOMA
     Dosage: 25 MG, UNK
     Dates: start: 20120409
  2. SUTENT [Suspect]
     Indication: LUNG NEOPLASM MALIGNANT

REACTIONS (4)
  - Disease progression [Fatal]
  - Gastrointestinal carcinoma [Fatal]
  - Lung neoplasm malignant [Fatal]
  - Off label use [Unknown]
